FAERS Safety Report 7434356-2 (Version None)
Quarter: 2011Q2

REPORT INFORMATION
  Report Type: 
  Country: None (occurrence: None)
  Receive Date: 20110425
  Receipt Date: 20110422
  Transmission Date: 20111010
  Serious: No
  Sender: FDA-Public Use
  Company Number: US-PFIZER INC-2011088048

PATIENT
  Sex: Female
  Weight: 68 kg

DRUGS (4)
  1. LEXAPRO [Concomitant]
     Indication: DEPRESSION
     Dosage: UNK
  2. ABILIFY [Concomitant]
     Indication: DEPRESSION
     Dosage: UNK
  3. PRISTIQ [Suspect]
     Indication: DEPRESSION
     Dosage: 50 MG, UNK
     Route: 048
     Dates: start: 20110329
  4. WELLBUTRIN [Concomitant]
     Indication: DEPRESSION
     Dosage: UNK

REACTIONS (3)
  - DRUG DISPENSING ERROR [None]
  - DRUG INEFFECTIVE [None]
  - EXPIRED DRUG ADMINISTERED [None]
